FAERS Safety Report 26116209 (Version 1)
Quarter: 2025Q4

REPORT INFORMATION
  Report Type: Spontaneous
  Country: US (occurrence: US)
  Receive Date: 20251203
  Receipt Date: 20251203
  Transmission Date: 20260118
  Serious: No
  Sender: TEVA
  Company Number: US-ABBVIE-6554367

PATIENT
  Sex: Female

DRUGS (1)
  1. OXYTROL [Suspect]
     Active Substance: OXYBUTYNIN
     Indication: Product used for unknown indication
     Route: 065

REACTIONS (4)
  - Application site pain [Unknown]
  - Product quality issue [Unknown]
  - Product adhesion issue [Unknown]
  - Application site erythema [Unknown]

NARRATIVE: CASE EVENT DATE: 20250101
